FAERS Safety Report 24168791 (Version 1)
Quarter: 2024Q3

REPORT INFORMATION
  Report Type: Spontaneous
  Country: US (occurrence: None)
  Receive Date: 20240802
  Receipt Date: 20240802
  Transmission Date: 20241017
  Serious: Yes (Hospitalization)
  Sender: Public
  Company Number: None

PATIENT
  Sex: Female

DRUGS (4)
  1. OPSUMIT [Suspect]
     Active Substance: MACITENTAN
     Indication: Pulmonary arterial hypertension
     Dosage: FREQUENCY : DAILY;?
     Route: 048
     Dates: start: 202310
  2. REMODULIN [Concomitant]
  3. WINREVAIR SDV [Concomitant]
  4. C-TREPROSTINIL (2.5ML) RM [Concomitant]

REACTIONS (4)
  - Cellulitis [None]
  - Nonspecific reaction [None]
  - Infusion related reaction [None]
  - Therapy cessation [None]
